FAERS Safety Report 8455038-4 (Version None)
Quarter: 2012Q2

REPORT INFORMATION
  Report Type: 
  Country: None (occurrence: None)
  Receive Date: 20120615
  Receipt Date: 20120615
  Transmission Date: 20120825
  Serious: Yes (Other)
  Sender: FDA-Public Use
  Company Number: None

PATIENT
  Sex: Female
  Weight: 63.5036 kg

DRUGS (1)
  1. PREDNISONE TAB [Suspect]
     Indication: POLYMYALGIA RHEUMATICA
     Dosage: SEE IMAGE
     Dates: start: 20101101, end: 20120301

REACTIONS (9)
  - FEELING HOT [None]
  - PARAESTHESIA [None]
  - BODY FAT DISORDER [None]
  - NAUSEA [None]
  - MUSCLE SPASMS [None]
  - FEELING COLD [None]
  - BURNING SENSATION [None]
  - ASTHENIA [None]
  - HYPOAESTHESIA [None]
